FAERS Safety Report 20170128 (Version 4)
Quarter: 2022Q1

REPORT INFORMATION
  Report Type: Spontaneous
  Country: US (occurrence: US)
  Receive Date: 20211210
  Receipt Date: 20220224
  Transmission Date: 20220424
  Serious: Yes (Hospitalization, Other)
  Sender: FDA-Public Use
  Company Number: US-PFIZER INC-202101721777

PATIENT
  Age: 95 Year
  Sex: Female
  Weight: 34.921 kg

DRUGS (2)
  1. PREMARIN [Suspect]
     Active Substance: ESTROGENS, CONJUGATED
     Indication: Skin disorder
     Dosage: UNK, 2X/DAY
  2. PREMARIN [Suspect]
     Active Substance: ESTROGENS, CONJUGATED
     Indication: Urinary tract infection
     Dosage: UNK, 2X/WEEK

REACTIONS (4)
  - Urinary tract infection [Unknown]
  - Sepsis [Unknown]
  - Off label use [Unknown]
  - Drug effective for unapproved indication [Unknown]
